FAERS Safety Report 20087737 (Version 1)
Quarter: 2021Q4

REPORT INFORMATION
  Report Type: Report from Study
  Country: US (occurrence: US)
  Receive Date: 20211118
  Receipt Date: 20211118
  Transmission Date: 20220303
  Serious: Yes (Other)
  Sender: FDA-Public Use
  Company Number: US-REGENERON PHARMACEUTICALS, INC.-2021-101397

PATIENT

DRUGS (2)
  1. EYLEA [Suspect]
     Active Substance: AFLIBERCEPT
     Indication: Retinal vein occlusion
     Dosage: 2 MG /0.05ML SINGLE DOSE VIAL (SDV), EVERY 4 WEEKS INTO THE LEFT EYE
     Route: 031
     Dates: start: 20201013, end: 202107
  2. BRILINTA [Concomitant]
     Active Substance: TICAGRELOR
     Indication: Product used for unknown indication

REACTIONS (2)
  - Eye haemorrhage [Not Recovered/Not Resolved]
  - Injury corneal [Not Recovered/Not Resolved]

NARRATIVE: CASE EVENT DATE: 20210701
